FAERS Safety Report 5424721-7 (Version None)
Quarter: 2007Q3

REPORT INFORMATION
  Report Type: 
  Country: None (occurrence: None)
  Receive Date: 20070822
  Receipt Date: 20070822
  Transmission Date: 20080115
  Serious: Yes (Hospitalization)
  Sender: FDA-Public Use
  Company Number: None

PATIENT
  Age: 43 Year
  Sex: Male

DRUGS (2)
  1. MORPHINE [Suspect]
     Indication: PAIN
     Dosage: 30MG TID PO
     Route: 048
     Dates: start: 20070809, end: 20070810
  2. OXYCODONE HCL [Suspect]
     Indication: PAIN
     Dosage: 5MG TID PO
     Route: 048
     Dates: start: 20070808, end: 20070809

REACTIONS (2)
  - RENAL FAILURE ACUTE [None]
  - SEDATION [None]
